FAERS Safety Report 24113067 (Version 1)
Quarter: 2024Q3

REPORT INFORMATION
  Report Type: Spontaneous
  Country: AT (occurrence: AT)
  Receive Date: 20240719
  Receipt Date: 20240719
  Transmission Date: 20241016
  Serious: No
  Sender: APELLIS PHARMACEUTICALS
  Company Number: AT-BIOVITRUM-2024-AT-008927

PATIENT

DRUGS (1)
  1. PEGCETACOPLAN [Suspect]
     Active Substance: PEGCETACOPLAN
     Indication: Immune-complex membranoproliferative glomerulonephritis

REACTIONS (3)
  - Musculoskeletal injury [Unknown]
  - Intentional product misuse [Unknown]
  - Accident [Unknown]
